FAERS Safety Report 14149701 (Version 7)
Quarter: 2025Q2

REPORT INFORMATION
  Report Type: Report from Study
  Country: US (occurrence: US)
  Receive Date: 20171101
  Receipt Date: 20250515
  Transmission Date: 20250716
  Serious: Yes (Other)
  Sender: JAZZ
  Company Number: US-JAZZ-2017-US-014140

PATIENT
  Sex: Female

DRUGS (14)
  1. XYREM [Suspect]
     Active Substance: SODIUM OXYBATE
     Indication: Narcolepsy
     Dosage: 2.25 GRAM, BID
     Route: 048
     Dates: start: 201708, end: 2017
  2. XYREM [Suspect]
     Active Substance: SODIUM OXYBATE
     Indication: Cataplexy
     Dosage: 3 GRAM, BID
     Route: 048
     Dates: start: 201709, end: 201710
  3. XYREM [Suspect]
     Active Substance: SODIUM OXYBATE
     Indication: Somnolence
  4. ENBREL [Suspect]
     Active Substance: ETANERCEPT
     Indication: Psoriatic arthropathy
  5. MELATONIN [Suspect]
     Active Substance: MELATONIN
     Indication: Product used for unknown indication
  6. FLUOCINONIDE [Concomitant]
     Active Substance: FLUOCINONIDE
     Indication: Product used for unknown indication
     Dates: start: 20170614
  7. ORENCIA [Concomitant]
     Active Substance: ABATACEPT
     Dates: start: 20240501
  8. MODAFINIL [Concomitant]
     Active Substance: MODAFINIL
     Dates: start: 20240509
  9. XIIDRA [Concomitant]
     Active Substance: LIFITEGRAST
     Dates: start: 20200509
  10. LIDODERM [Concomitant]
     Active Substance: LIDOCAINE
     Dates: start: 20200509
  11. TRIAMCINOLONE [Concomitant]
     Active Substance: TRIAMCINOLONE
     Dates: start: 20200509
  12. ACETAMINOPHEN\HYDROCODONE [Concomitant]
     Active Substance: ACETAMINOPHEN\HYDROCODONE
     Dates: start: 20250209
  13. BUPROPION HYDROCHLORIDE [Concomitant]
     Active Substance: BUPROPION HYDROCHLORIDE
     Dates: start: 20241101
  14. SIMVASTATIN [Concomitant]
     Active Substance: SIMVASTATIN
     Dates: start: 20250209

REACTIONS (8)
  - Psoriatic arthropathy [Not Recovered/Not Resolved]
  - Infection [Unknown]
  - Ear disorder [Not Recovered/Not Resolved]
  - Illness [Unknown]
  - Fibromyalgia [Not Recovered/Not Resolved]
  - Bronchitis [Unknown]
  - Abnormal dreams [Unknown]
  - Depression [Unknown]
